FAERS Safety Report 4405859-X (Version None)
Quarter: 2004Q3

REPORT INFORMATION
  Report Type: 
  Country: None (occurrence: None)
  Receive Date: 20040723
  Receipt Date: 20040120
  Transmission Date: 20050211
  Serious: No
  Sender: FDA-Public Use
  Company Number: US-GLAXOSMITHKLINE-A0494258A

PATIENT
  Age: 76 Year
  Sex: Female

DRUGS (9)
  1. AVANDIA [Suspect]
     Dosage: 8MG PER DAY
     Route: 048
  2. ZOCOR [Concomitant]
  3. ACCUPRIL [Concomitant]
  4. FOSAMAX [Concomitant]
  5. METFORMIN HCL [Concomitant]
  6. GLUCOSAMINE [Concomitant]
  7. DITROPAN [Concomitant]
  8. MULTI-VITAMIN [Concomitant]
  9. FLAXSEED [Concomitant]

REACTIONS (1)
  - HYPERGLYCAEMIA [None]
